FAERS Safety Report 23133192 (Version 1)
Quarter: 2023Q4

REPORT INFORMATION
  Report Type: Spontaneous
  Country: US (occurrence: US)
  Receive Date: 20231101
  Receipt Date: 20231101
  Transmission Date: 20240110
  Serious: Yes (Death, Hospitalization, Other)
  Sender: FDA-Public Use
  Company Number: US-AMGEN-USASP2023189393

PATIENT

DRUGS (1)
  1. CARFILZOMIB [Suspect]
     Active Substance: CARFILZOMIB
     Indication: Plasma cell myeloma
     Dosage: UNK
     Route: 065

REACTIONS (36)
  - Death [Fatal]
  - Pneumocystis jirovecii pneumonia [Fatal]
  - Varicella zoster virus infection [Fatal]
  - Respiratory tract infection [Fatal]
  - Haematological infection [Fatal]
  - Gastrointestinal infection [Fatal]
  - Genitourinary tract infection [Fatal]
  - Skin infection [Fatal]
  - Soft tissue infection [Fatal]
  - Oral infection [Fatal]
  - Eye infection [Fatal]
  - Central nervous system infection [Fatal]
  - Pseudomonas infection [Fatal]
  - Clostridium difficile infection [Fatal]
  - Escherichia infection [Fatal]
  - Enterococcal infection [Fatal]
  - Klebsiella infection [Fatal]
  - Streptococcal infection [Fatal]
  - Staphylococcal infection [Fatal]
  - Proteus infection [Fatal]
  - Legionella infection [Fatal]
  - Stenotrophomonas infection [Fatal]
  - Fusobacterium infection [Fatal]
  - Citrobacter infection [Fatal]
  - Listeriosis [Fatal]
  - Morganella infection [Fatal]
  - Influenza [Fatal]
  - Respiratory syncytial virus infection [Fatal]
  - COVID-19 [Fatal]
  - Metapneumovirus infection [Fatal]
  - Parainfluenzae virus infection [Fatal]
  - Cytomegalovirus infection [Fatal]
  - BK virus infection [Fatal]
  - Aspergillus infection [Fatal]
  - Candida infection [Fatal]
  - Plasma cell myeloma [Unknown]
